FAERS Safety Report 19234608 (Version 2)
Quarter: 2021Q2

REPORT INFORMATION
  Report Type: Spontaneous
  Country: US (occurrence: US)
  Receive Date: 20210508
  Receipt Date: 20210511
  Transmission Date: 20210717
  Serious: No
  Sender: FDA-Public Use
  Company Number: US-SA-2021SA145948

PATIENT
  Age: 30 Year
  Sex: Male

DRUGS (1)
  1. LANTUS SOLOSTAR [Suspect]
     Active Substance: INSULIN GLARGINE
     Indication: TYPE 1 DIABETES MELLITUS
     Dosage: 60 IU, QD
     Route: 065

REACTIONS (3)
  - Product dose omission issue [Unknown]
  - Injection site pain [Unknown]
  - Device operational issue [Unknown]
